FAERS Safety Report 8543723 (Version 4)
Quarter: 2013Q1

REPORT INFORMATION
  Report Type: Spontaneous
  Country: US (occurrence: US)
  Receive Date: 20120503
  Receipt Date: 20130116
  Transmission Date: 20140127
  Serious: Yes (Other)
  Sender: FDA-Public Use
  Company Number: US-BAYER-2012-042080

PATIENT
  Age: 23 Year
  Sex: Female
  Weight: 58.96 kg

DRUGS (6)
  1. YAZ [Suspect]
     Indication: CONTRACEPTION
     Dosage: UNK
     Dates: start: 2004, end: 2006
  2. YASMIN [Suspect]
  3. OXYCODONE [Concomitant]
     Indication: ARTHRALGIA
     Dosage: UNK
     Dates: start: 2006, end: 2008
  4. XANAX [Concomitant]
     Indication: INSOMNIA
     Dosage: UNK
     Dates: start: 2006, end: 2010
  5. XANAX [Concomitant]
     Indication: ANXIETY
  6. NASONEX [Concomitant]
     Dosage: 50 MCG, 2 SPRAYS EACH NOSTRIL
     Route: 045
     Dates: start: 20060203

REACTIONS (8)
  - Cholecystitis chronic [None]
  - Cholelithiasis [None]
  - Gallbladder pain [None]
  - Injury [None]
  - Pain [None]
  - Emotional distress [None]
  - Anxiety [None]
  - Psychological trauma [None]
